FAERS Safety Report 4965040-2 (Version None)
Quarter: 2006Q1

REPORT INFORMATION
  Report Type: 
  Country: None (occurrence: None)
  Receive Date: 20060207
  Receipt Date: 20051124
  Transmission Date: 20060701
  Serious: Yes (Life-Threatening)
  Sender: FDA-Public Use
  Company Number: 247471

PATIENT
  Age: 36 Year
  Sex: Female
  Weight: 98.4 kg

DRUGS (2)
  1. NOVOLOG [Suspect]
     Indication: DIABETES MELLITUS INSULIN-DEPENDENT
     Dosage: SLIDING SCALE, QID, SUBCUTANEOUS
     Route: 058
     Dates: start: 20000101
  2. LANTUS [Concomitant]

REACTIONS (1)
  - HYPOGLYCAEMIC COMA [None]
